FAERS Safety Report 6196891-7 (Version None)
Quarter: 2009Q2

REPORT INFORMATION
  Report Type: 
  Country: None (occurrence: None)
  Receive Date: 20090520
  Receipt Date: 20090518
  Transmission Date: 20091009
  Serious: Yes (Disabling)
  Sender: FDA-Public Use
  Company Number: US-BAYER-200910443BCC

PATIENT
  Age: 69 Year
  Sex: Female

DRUGS (6)
  1. ASPIRIN [Suspect]
     Indication: DRUG USE FOR UNKNOWN INDICATION
     Dosage: TOTAL DAILY DOSE: 162 MG  UNIT DOSE: 81 MG
     Route: 048
  2. PLAVIX [Suspect]
     Indication: ARTERIAL STENT INSERTION
     Dosage: TOTAL DAILY DOSE: 75 MG  UNIT DOSE: 75 MG
     Route: 048
     Dates: start: 20080101
  3. SULINDAC [Suspect]
     Indication: PAIN
  4. METOPROLOL SUCCINATE [Concomitant]
  5. EZETIMIBE + SIMVASTATIN [Concomitant]
     Route: 048
  6. GLYCERYL TRINITRATE [Concomitant]
     Indication: CHEST DISCOMFORT

REACTIONS (9)
  - ABDOMINAL PAIN UPPER [None]
  - CONTUSION [None]
  - DIZZINESS [None]
  - GAIT DISTURBANCE [None]
  - HAEMORRHAGE [None]
  - LOWER EXTREMITY MASS [None]
  - MUSCULOSKELETAL STIFFNESS [None]
  - OEDEMA PERIPHERAL [None]
  - PARAESTHESIA ORAL [None]
